FAERS Safety Report 11178695 (Version 6)
Quarter: 2016Q1

REPORT INFORMATION
  Report Type: Report from Study
  Country: CA (occurrence: CA)
  Receive Date: 20150610
  Receipt Date: 20160110
  Transmission Date: 20160525
  Serious: Yes (Hospitalization)
  Sender: FDA-Public Use
  Company Number: PHHY2014CA037559

PATIENT
  Age: 57 Year
  Sex: Male

DRUGS (2)
  1. SANDOSTATIN LAR DEPOT [Suspect]
     Active Substance: OCTREOTIDE ACETATE
     Indication: CARCINOID TUMOUR
     Dosage: 40 MG, EVERY 3 WEEKS
     Route: 030
     Dates: start: 20021101
  2. SANDOSTATIN LAR DEPOT [Suspect]
     Active Substance: OCTREOTIDE ACETATE
     Dosage: 60 MG, UNK
     Route: 030

REACTIONS (10)
  - Blood electrolytes abnormal [Unknown]
  - Wrong technique in product usage process [Unknown]
  - Dyspepsia [Unknown]
  - Diarrhoea [Not Recovered/Not Resolved]
  - Malignant neoplasm progression [Unknown]
  - Discomfort [Unknown]
  - Blood pressure systolic increased [Unknown]
  - Heart rate increased [Unknown]
  - Inappropriate schedule of drug administration [Unknown]
  - Blood pressure diastolic decreased [Unknown]

NARRATIVE: CASE EVENT DATE: 20140324
